FAERS Safety Report 10888284 (Version 1)
Quarter: 2015Q1

REPORT INFORMATION
  Report Type: Spontaneous
  Country: US (occurrence: US)
  Receive Date: 20150304
  Receipt Date: 20150304
  Transmission Date: 20150721
  Serious: Yes (Other)
  Sender: FDA-Public Use
  Company Number: US-MYLANLABS-2015M1005401

PATIENT

DRUGS (1)
  1. EPIPEN JR [Suspect]
     Active Substance: EPINEPHRINE
     Indication: ANAPHYLACTIC SHOCK
     Dosage: UNK
     Dates: start: 201502, end: 201502

REACTIONS (2)
  - Device failure [Not Recovered/Not Resolved]
  - Injection site laceration [Not Recovered/Not Resolved]

NARRATIVE: CASE EVENT DATE: 201502
